FAERS Safety Report 9808309 (Version 6)
Quarter: 2015Q1

REPORT INFORMATION
  Report Type: Spontaneous
  Country: US (occurrence: US)
  Receive Date: 20140110
  Receipt Date: 20150227
  Transmission Date: 20150721
  Serious: Yes (Disabling)
  Sender: FDA-Public Use
  Company Number: US-009507513-1108USA03566

PATIENT
  Sex: Male

DRUGS (1)
  1. PROPECIA [Suspect]
     Active Substance: FINASTERIDE
     Indication: ANDROGENETIC ALOPECIA
     Dosage: 1 MG, QD
     Route: 048
     Dates: start: 20061122, end: 2011

REACTIONS (16)
  - Anxiety [Unknown]
  - Loss of libido [Unknown]
  - Emotional poverty [Unknown]
  - Erectile dysfunction [Unknown]
  - Memory impairment [Unknown]
  - Depression [Unknown]
  - Tonsillar disorder [Unknown]
  - Testicular atrophy [Unknown]
  - Sinus disorder [Unknown]
  - Blood testosterone decreased [Unknown]
  - Gynaecomastia [Unknown]
  - Wisdom teeth removal [Unknown]
  - Emotional distress [Unknown]
  - Male sexual dysfunction [Unknown]
  - Disturbance in attention [Unknown]
  - Insomnia [Unknown]

NARRATIVE: CASE EVENT DATE: 20080301
